FAERS Safety Report 6381491-6 (Version None)
Quarter: 2009Q3

REPORT INFORMATION
  Report Type: 
  Country: None (occurrence: None)
  Receive Date: 20090924
  Receipt Date: 20090914
  Transmission Date: 20100115
  Serious: Yes (Hospitalization, Other)
  Sender: FDA-Public Use
  Company Number: CHPA2009US18781

PATIENT
  Age: 71 Year
  Sex: Female
  Weight: 61.2 kg

DRUGS (4)
  1. EXCEDRIN (MIGRAINE) [Suspect]
     Indication: HEADACHE
     Dosage: 4-8 DF, QD, ORAL
     Route: 048
  2. LIPITOR [Concomitant]
  3. MULTIVITAMINS, PLAIN (NO INGREDIENTS/SUBSTANCES) [Concomitant]
  4. CALCIUM (CALCIUM) [Concomitant]

REACTIONS (5)
  - BLOOD POTASSIUM DECREASED [None]
  - GASTROOESOPHAGEAL REFLUX DISEASE [None]
  - HYPERTENSION [None]
  - INTENTIONAL DRUG MISUSE [None]
  - PRODUCT CONTAMINATION [None]
